FAERS Safety Report 21710485 (Version 1)
Quarter: 2022Q4

REPORT INFORMATION
  Report Type: Spontaneous
  Country: ZA (occurrence: ZA)
  Receive Date: 20221212
  Receipt Date: 20221212
  Transmission Date: 20230112
  Serious: Yes (Other)
  Sender: FDA-Public Use
  Company Number: ZA-GLENMARK PHARMACEUTICALS-2022GMK076082

PATIENT

DRUGS (1)
  1. IMIQUIMOD [Suspect]
     Active Substance: IMIQUIMOD
     Indication: Basal cell carcinoma
     Dosage: UNK (5 DAYS AND BREAK ON WEEKENDS)
     Route: 061
     Dates: start: 2022, end: 2022

REACTIONS (2)
  - Skin necrosis [Unknown]
  - Application site infection [Unknown]

NARRATIVE: CASE EVENT DATE: 20220101
